FAERS Safety Report 14528495 (Version 2)
Quarter: 2018Q1

REPORT INFORMATION
  Report Type: Report from Study
  Country: US (occurrence: US)
  Receive Date: 20180214
  Receipt Date: 20180316
  Transmission Date: 20180509
  Serious: Yes (Hospitalization, Other)
  Sender: FDA-Public Use
  Company Number: US-GILEAD-2018-0320582

PATIENT
  Age: 83 Year
  Sex: Male
  Weight: 100.23 kg

DRUGS (21)
  1. DOK PLUS [Concomitant]
     Active Substance: DOCUSATE SODIUM\SENNOSIDES
  2. POTASSIUM CHLORIDE. [Concomitant]
     Active Substance: POTASSIUM CHLORIDE
  3. ATIVAN [Concomitant]
     Active Substance: LORAZEPAM
  4. HALDOL [Concomitant]
     Active Substance: HALOPERIDOL
  5. DUONEB [Concomitant]
     Active Substance: ALBUTEROL SULFATE\IPRATROPIUM BROMIDE
  6. VITAMIN D [Concomitant]
     Active Substance: CHOLECALCIFEROL
  7. LEVSIN SL [Concomitant]
     Active Substance: HYOSCYAMINE SULFATE
  8. GLYCOLAX [Concomitant]
     Active Substance: POLYETHYLENE GLYCOL 3350
  9. LANTUS [Concomitant]
     Active Substance: INSULIN GLARGINE
  10. AMBRISENTAN [Suspect]
     Active Substance: AMBRISENTAN
     Indication: PRODUCT USED FOR UNKNOWN INDICATION
     Dosage: 5 MG, UNK
     Route: 065
  11. ZAROXOLYN [Concomitant]
     Active Substance: METOLAZONE
  12. LOPRESSOR [Concomitant]
     Active Substance: METOPROLOL TARTRATE
  13. REVATIO [Concomitant]
     Active Substance: SILDENAFIL CITRATE
  14. ROXANOL [Concomitant]
     Active Substance: MORPHINE SULFATE
  15. LASIX [Concomitant]
     Active Substance: FUROSEMIDE
  16. ALDACTONE [Concomitant]
     Active Substance: SPIRONOLACTONE
  17. PROAIR HFA [Concomitant]
     Active Substance: ALBUTEROL SULFATE
  18. PROTONIX                           /00661201/ [Concomitant]
     Active Substance: OMEPRAZOLE
  19. JANUVIA [Concomitant]
     Active Substance: SITAGLIPTIN PHOSPHATE
  20. ZYLOPRIM [Concomitant]
     Active Substance: ALLOPURINOL
  21. HUMALOG [Concomitant]
     Active Substance: INSULIN LISPRO

REACTIONS (2)
  - Acute respiratory failure [Not Recovered/Not Resolved]
  - Cardiac failure congestive [Unknown]

NARRATIVE: CASE EVENT DATE: 20180213
